FAERS Safety Report 8771670 (Version 1)
Quarter: 2012Q4

REPORT INFORMATION
  Report Type: 
  Country: IN (occurrence: IN)
  Receive Date: 20120906
  Receipt Date: 20120906
  Transmission Date: 20130627
  Serious: Yes (Other)
  Sender: FDA-Public Use
  Company Number: IN-VALEANT-2012VX004045

PATIENT
  Age: 42 Year
  Sex: Female

DRUGS (9)
  1. NEOSTIGMINE BROMIDE [Suspect]
     Indication: DRUG USE FOR UNKNOWN INDICATION
     Route: 042
  2. ATROPINE [Suspect]
     Indication: DRUG USE FOR UNKNOWN INDICATION
     Route: 042
  3. FENTANYL [Concomitant]
     Indication: ANESTHESIA
     Route: 042
  4. MIDAZOLAM [Concomitant]
     Indication: ANESTHESIA
     Route: 065
  5. THIOPENTONE SODIUM [Concomitant]
     Indication: ANESTHESIA
     Route: 065
  6. NITROUS OXIDE [Concomitant]
     Indication: ANESTHESIA
     Route: 065
  7. ISOFLURANE [Concomitant]
     Indication: ANESTHESIA
     Route: 065
  8. VECURONIUM [Concomitant]
     Indication: ANESTHESIA
     Route: 065
  9. SUXAMETHONIUM [Concomitant]
     Indication: ANESTHESIA
     Route: 065

REACTIONS (2)
  - Muscle spasms [Recovered/Resolved]
  - Myotonia [Recovered/Resolved]
